FAERS Safety Report 9278405 (Version 1)
Quarter: 2012Q4

REPORT INFORMATION
  Report Type: Spontaneous
  Country: JP (occurrence: None)
  Receive Date: 20121109
  Receipt Date: 20121109
  Transmission Date: 20130627
  Serious: Yes (Life-Threatening)
  Sender: FDA-Public Use
  Company Number: 2012S1000354

PATIENT
  Age: 60 Year
  Sex: Male
  Weight: 81 kg

DRUGS (10)
  1. CUBICIN [Suspect]
     Indication: DIABETIC FOOT
     Route: 042
     Dates: start: 20120309, end: 20120315
  2. LIVALO [Concomitant]
  3. VALSARTAN [Concomitant]
  4. ALISKIREN [Concomitant]
  5. ARTIST [Concomitant]
  6. WARFARIN [Concomitant]
  7. ALL OTHER THERAPEUTIC PRODUCTS [Concomitant]
  8. LANTUS [Concomitant]
  9. APIDRA [Concomitant]
  10. NEXIUM [Concomitant]

REACTIONS (1)
  - Cardiac failure acute [None]
